FAERS Safety Report 6818765-8 (Version None)
Quarter: 2010Q3

REPORT INFORMATION
  Report Type: 
  Country: None (occurrence: None)
  Receive Date: 20100701
  Receipt Date: 20100624
  Transmission Date: 20110219
  Serious: Yes (Other)
  Sender: FDA-Public Use
  Company Number: 2008-178051-NL

PATIENT
  Age: 24 Year
  Sex: Female
  Weight: 58.1 kg

DRUGS (12)
  1. NUVARING [Suspect]
     Indication: CONTRACEPTION
     Dosage: VAG
     Route: 067
     Dates: start: 20060401, end: 20080101
  2. BENADRYL [Concomitant]
  3. TYLENOL (CAPLET) [Concomitant]
  4. SYNTHROID [Concomitant]
  5. PROPOXYPHENE NAPSYLATE W/ ACETAMINOPHEN [Concomitant]
  6. CEPHALEXIN [Concomitant]
  7. PROVENTIL HEFA [Concomitant]
  8. SSKI [Concomitant]
  9. METOPROLOL [Concomitant]
  10. NADOLOL [Concomitant]
  11. LEVOTHYROXINE [Concomitant]
  12. METHIMAZOLE [Concomitant]

REACTIONS (29)
  - ACUTE SINUSITIS [None]
  - ALOPECIA [None]
  - APHTHOUS STOMATITIS [None]
  - AREFLEXIA [None]
  - ASTHMA EXERCISE INDUCED [None]
  - BALANCE DISORDER [None]
  - BASEDOW'S DISEASE [None]
  - BLINDNESS UNILATERAL [None]
  - CEREBROVASCULAR ACCIDENT [None]
  - DRUG EXPOSURE DURING PREGNANCY [None]
  - DYSPHAGIA [None]
  - FACIAL PARESIS [None]
  - FEELING JITTERY [None]
  - HYPERTHYROIDISM [None]
  - MENTAL IMPAIRMENT [None]
  - MIGRAINE [None]
  - MUSCLE SPASMS [None]
  - MUSCULOSKELETAL PAIN [None]
  - PAIN IN EXTREMITY [None]
  - PARAESTHESIA [None]
  - PHARYNGITIS [None]
  - PREGNANCY [None]
  - SINUS TACHYCARDIA [None]
  - SPEECH DISORDER [None]
  - TONGUE PARALYSIS [None]
  - TRANSIENT ISCHAEMIC ATTACK [None]
  - UPPER RESPIRATORY TRACT INFECTION [None]
  - VOMITING [None]
  - WEIGHT DECREASED [None]
